FAERS Safety Report 8378877-7 (Version None)
Quarter: 2012Q2

REPORT INFORMATION
  Report Type: 
  Country: None (occurrence: None)
  Receive Date: 20120522
  Receipt Date: 20120522
  Transmission Date: 20120825
  Serious: No
  Sender: FDA-Public Use
  Company Number: None

PATIENT
  Age: 75 Year
  Sex: Male
  Weight: 100.7 kg

DRUGS (20)
  1. SUCRALFATE [Concomitant]
  2. PROPOFOL [Concomitant]
  3. ASPIRIN [Concomitant]
  4. POLYETHLENE GLYCOL [Concomitant]
  5. PERCOCET [Concomitant]
  6. REGULAR INSULIN [Concomitant]
  7. SIMVASTATIN [Concomitant]
  8. METFORMIN HCL [Concomitant]
  9. ALBUMINAR-25 [Suspect]
     Indication: HAEMODYNAMIC INSTABILITY
     Dosage: 25G X 1 IV
     Route: 042
     Dates: start: 20120424, end: 20120424
  10. LISINOPRIL [Concomitant]
  11. POTASSIUM CHLORIDE [Concomitant]
  12. LISINOPRIL [Concomitant]
  13. SENNA-MINT WAF [Concomitant]
  14. PSYLLIUM [Concomitant]
  15. FUROSEMIDE [Concomitant]
  16. NITROGLYCERIN [Concomitant]
  17. PHENYLEPHRINE HCL [Concomitant]
  18. CLOTRIMAZOLE [Concomitant]
  19. INSULIN [Concomitant]
  20. ALBUMINAR-25 [Suspect]
     Indication: HAEMODYNAMIC INSTABILITY
     Dosage: 25G X 1 IV
     Route: 042
     Dates: start: 20120424, end: 20120424

REACTIONS (2)
  - INFUSION RELATED REACTION [None]
  - BLOOD PRESSURE DECREASED [None]
